FAERS Safety Report 19200466 (Version 2)
Quarter: 2021Q2

REPORT INFORMATION
  Report Type: Spontaneous
  Country: US (occurrence: US)
  Receive Date: 20210430
  Receipt Date: 20210510
  Transmission Date: 20210717
  Serious: Yes (Other)
  Sender: FDA-Public Use
  Company Number: US-BAYER-2021-129010

PATIENT
  Sex: Female

DRUGS (1)
  1. MIRENA [Suspect]
     Active Substance: LEVONORGESTREL
     Dosage: 20 ?G PER DAY CONTINUOUSLY
     Route: 015
     Dates: start: 201911, end: 20210420

REACTIONS (5)
  - Medical device pain [None]
  - Device malfunction [None]
  - Embedded device [None]
  - Genital haemorrhage [None]
  - Device defective [None]

NARRATIVE: CASE EVENT DATE: 20210420
